FAERS Safety Report 24785006 (Version 1)
Quarter: 2024Q4

REPORT INFORMATION
  Report Type: Spontaneous
  Country: US (occurrence: US)
  Receive Date: 20241228
  Receipt Date: 20241228
  Transmission Date: 20250114
  Serious: No
  Sender: UNITED THERAPEUTICS
  Company Number: US-UNITED THERAPEUTICS-UNT-2024-041050

PATIENT
  Sex: Male
  Weight: 110.66 kg

DRUGS (7)
  1. REMODULIN [Suspect]
     Active Substance: TREPROSTINIL
     Indication: Pulmonary arterial hypertension
     Dosage: UNK, CONTINUING
  2. TREPROSTINIL [Suspect]
     Active Substance: TREPROSTINIL
     Indication: Pulmonary arterial hypertension
     Dosage: 0.034 ?G/KG, CONTINUING
     Route: 041
  3. TREPROSTINIL [Suspect]
     Active Substance: TREPROSTINIL
     Dosage: 0.032 ?G/KG, CONTINUING
     Route: 041
  4. TREPROSTINIL [Suspect]
     Active Substance: TREPROSTINIL
     Dosage: UNK, CONTINUING
     Route: 041
  5. UPTRAVI [Suspect]
     Active Substance: SELEXIPAG
     Indication: Product used for unknown indication
     Dosage: UNK
  6. AMBRISENTAN [Concomitant]
     Active Substance: AMBRISENTAN
     Indication: Product used for unknown indication
     Dosage: UNK
  7. TADALAFIL [Concomitant]
     Active Substance: TADALAFIL
     Indication: Product used for unknown indication
     Dosage: UNK

REACTIONS (5)
  - Fatigue [Unknown]
  - Arthralgia [Unknown]
  - Pain in jaw [Unknown]
  - Abdominal discomfort [Recovering/Resolving]
  - Neck pain [Unknown]

NARRATIVE: CASE EVENT DATE: 20240101
